FAERS Safety Report 16858413 (Version 1)
Quarter: 2019Q3

REPORT INFORMATION
  Report Type: Spontaneous
  Country: US (occurrence: US)
  Receive Date: 20190926
  Receipt Date: 20190926
  Transmission Date: 20191005
  Serious: Yes (Other)
  Sender: FDA-Public Use
  Company Number: US-TARO-2019TAR00650

PATIENT
  Age: 13 Month
  Sex: Female
  Weight: 11.16 kg

DRUGS (4)
  1. FEVERALL INFANTS [Suspect]
     Active Substance: ACETAMINOPHEN
     Indication: PYREXIA
     Dosage: 80 MG, ONCE
     Route: 054
     Dates: start: 201909, end: 201909
  2. FEVERALL INFANTS [Suspect]
     Active Substance: ACETAMINOPHEN
     Dosage: 160 MG, AS NEEDED
     Route: 054
     Dates: start: 20190915, end: 201909
  3. FEVERALL INFANTS [Suspect]
     Active Substance: ACETAMINOPHEN
     Dosage: 80 MG, ONCE
     Route: 054
     Dates: start: 20190915, end: 20190915
  4. FEVERALL INFANTS [Suspect]
     Active Substance: ACETAMINOPHEN
     Dosage: 169 MG, ONCE
     Route: 054
     Dates: start: 20190915, end: 20190915

REACTIONS (3)
  - Urinary tract infection [Recovered/Resolved]
  - Drug ineffective [Recovered/Resolved]
  - Overdose [Recovered/Resolved]

NARRATIVE: CASE EVENT DATE: 201909
